FAERS Safety Report 6966592-3 (Version None)
Quarter: 2010Q3

REPORT INFORMATION
  Report Type: 
  Country: None (occurrence: None)
  Receive Date: 20100906
  Receipt Date: 20100830
  Transmission Date: 20110219
  Serious: No
  Sender: FDA-Public Use
  Company Number: US-BIOGENIDEC-2010BI030286

PATIENT
  Age: 53 Year
  Sex: Male

DRUGS (1)
  1. TYSABRI [Suspect]
     Indication: MULTIPLE SCLEROSIS
     Route: 042
     Dates: start: 20100322

REACTIONS (5)
  - ARTHRALGIA [None]
  - BLADDER DISORDER [None]
  - HEADACHE [None]
  - MUSCLE SPASTICITY [None]
  - WHITE BLOOD CELL COUNT INCREASED [None]
